FAERS Safety Report 23347256 (Version 3)
Quarter: 2024Q2

REPORT INFORMATION
  Report Type: Spontaneous
  Country: US (occurrence: US)
  Receive Date: 20231228
  Receipt Date: 20240408
  Transmission Date: 20240716
  Serious: Yes (Hospitalization, Other)
  Sender: FDA-Public Use
  Company Number: US-PFIZER INC-202300449696

PATIENT
  Age: 48 Year
  Sex: Female
  Weight: 88.435 kg

DRUGS (18)
  1. PAXLOVID [Suspect]
     Active Substance: NIRMATRELVIR\RITONAVIR
     Indication: COVID-19 treatment
     Dosage: [NIRMATRELVIR 300 MG]/[RITONAVIR 100 MG]; 2X/DAY
     Dates: start: 20231211, end: 20231216
  2. LEVOTHYROXINE [Concomitant]
     Active Substance: LEVOTHYROXINE\LEVOTHYROXINE SODIUM
     Dosage: UNK
     Dates: start: 19981001
  3. LAMOTRIGINE [Concomitant]
     Active Substance: LAMOTRIGINE
     Indication: Bipolar disorder
     Dosage: UNK
     Dates: start: 20200401
  4. LAMOTRIGINE [Concomitant]
     Active Substance: LAMOTRIGINE
     Dosage: UNK
     Dates: start: 202011
  5. LAMOTRIGINE [Concomitant]
     Active Substance: LAMOTRIGINE
     Dosage: 200 MG, 1X/DAY (1 QHS)
     Route: 048
     Dates: start: 20231013
  6. DULOXETINE [Concomitant]
     Active Substance: DULOXETINE
     Indication: Depression
     Dosage: UNK
     Dates: start: 20200701
  7. DULOXETINE [Concomitant]
     Active Substance: DULOXETINE
     Dosage: UNK
     Dates: start: 2021
  8. DULOXETINE [Concomitant]
     Active Substance: DULOXETINE
     Dosage: UNK
     Dates: start: 20221111
  9. PROVENTIL HFA [SALBUTAMOL] [Concomitant]
     Indication: Wheezing
     Dosage: INHALE 2 PUFFS INTO THE LUNGS EVERY 4 (FOUR) HOURS AS NEEDED.
     Route: 045
     Dates: start: 20231215, end: 20240213
  10. PROVENTIL HFA [SALBUTAMOL] [Concomitant]
     Indication: Dyspnoea
  11. VITAMIN D3 [Concomitant]
     Active Substance: CHOLECALCIFEROL
     Dosage: UNK
     Dates: start: 20120906
  12. CYMBALTA [Concomitant]
     Active Substance: DULOXETINE HYDROCHLORIDE
     Dosage: UNK
     Dates: start: 20221111
  13. EPINEPHRINE [Concomitant]
     Active Substance: EPINEPHRINE
     Dosage: ADMINISTER 1 PEN INJECTOR SINGLE DOSE AS NEEDED CALL 911 AFTER USE
     Route: 030
     Dates: start: 20230324
  14. METROCREAM [Concomitant]
     Active Substance: METRONIDAZOLE
     Dosage: APPLY 2 (TWO) TIMES DAILY.
     Route: 061
     Dates: start: 20231013
  15. INDERAL [Concomitant]
     Active Substance: PROPRANOLOL HYDROCHLORIDE
     Indication: Performance fear
     Dosage: TAKE 1 TABLET TWICE A DAY AS NEEDED.
     Route: 048
     Dates: start: 20231013
  16. PROTOPIC [Concomitant]
     Active Substance: TACROLIMUS
     Dosage: APPLY 2 (TWO) TIMES DAILY
     Route: 061
     Dates: start: 20231013
  17. SYNTHROID [Concomitant]
     Active Substance: LEVOTHYROXINE SODIUM
     Indication: Hypothyroidism
     Dosage: TAKE 1 TABLET (88 MCG) EVERY MORNING
     Route: 048
     Dates: start: 20231013
  18. DOVONEX [Concomitant]
     Active Substance: CALCIPOTRIENE
     Dosage: APPLY 2 (TWO) TIMES DAILY.
     Route: 061
     Dates: start: 20230201

REACTIONS (3)
  - Appendicitis [Recovered/Resolved]
  - COVID-19 [Recovered/Resolved]
  - Disease recurrence [Recovered/Resolved]

NARRATIVE: CASE EVENT DATE: 20231218
